FAERS Safety Report 4980284-1 (Version None)
Quarter: 2006Q2

REPORT INFORMATION
  Report Type: 
  Country: None (occurrence: None)
  Receive Date: 20060420
  Receipt Date: 20060420
  Transmission Date: 20061013
  Serious: Yes (Hospitalization)
  Sender: FDA-Public Use
  Company Number: None

PATIENT
  Age: 81 Year
  Sex: Male
  Weight: 74.8 kg

DRUGS (14)
  1. HYTRIN [Suspect]
  2. SENNA [Concomitant]
  3. TERAZOSIN HCL [Concomitant]
  4. ACETAMINOPHEN (INPT-UD) [Concomitant]
  5. OXYCODONE 5MG/ACETAMINOPHEN 325MG [Concomitant]
  6. CITALOPRAM [Concomitant]
  7. GLIPIZIDE [Concomitant]
  8. BISACODYL SUPP [Concomitant]
  9. THEOPHYLLINE [Concomitant]
  10. PREDNISONE [Concomitant]
  11. LEVOTHYROXINE SODIUM [Concomitant]
  12. IPRATROPIUM BROMIDE [Concomitant]
  13. HUMULIN R [Concomitant]
  14. ALBUTEROL [Concomitant]

REACTIONS (1)
  - DIZZINESS [None]
